FAERS Safety Report 24410835 (Version 1)
Quarter: 2024Q4

REPORT INFORMATION
  Report Type: Other
  Country: JP (occurrence: JP)
  Receive Date: 20241008
  Receipt Date: 20241008
  Transmission Date: 20250115
  Serious: Yes (Life-Threatening)
  Sender: B BRAUN
  Company Number: JP-B.Braun Medical Inc.-2162635

PATIENT
  Age: 46 Year
  Sex: Male
  Weight: 82.4 kg

DRUGS (3)
  1. HEPARIN SODIUM IN DEXTROSE [Suspect]
     Active Substance: HEPARIN SODIUM
     Indication: Thrombosis
  2. PREDNISOLONE [Concomitant]
     Active Substance: PREDNISOLONE
  3. ALTEPLASE [Concomitant]
     Active Substance: ALTEPLASE

REACTIONS (1)
  - Drug ineffective [Unknown]
